FAERS Safety Report 8795150 (Version 2)
Quarter: 2012Q4

REPORT INFORMATION
  Report Type: 
  Country: FR (occurrence: FR)
  Receive Date: 20120917
  Receipt Date: 20121122
  Transmission Date: 20130627
  Serious: Yes (Hospitalization)
  Sender: FDA-Public Use
  Company Number: FR-ROCHE-1127183

PATIENT
  Age: 16 Year
  Sex: Male

DRUGS (1)
  1. COPEGUS [Suspect]
     Indication: PRODUCT USED FOR UNKNOWN INDICATION
     Route: 048
     Dates: start: 20120703, end: 20120823

REACTIONS (1)
  - Pancytopenia [Recovered/Resolved]
